FAERS Safety Report 13770841 (Version 2)
Quarter: 2017Q3

REPORT INFORMATION
  Report Type: Spontaneous
  Country: FR (occurrence: FR)
  Receive Date: 20170720
  Receipt Date: 20170816
  Transmission Date: 20171127
  Serious: Yes (Hospitalization, Disabling, Other)
  Sender: FDA-Public Use
  Company Number: FR-BAXTER-2017BAX026489

PATIENT
  Age: 54 Year
  Sex: Female

DRUGS (19)
  1. ENDOXAN 1000 MG, POUDRE POUR SOLUTION INJECTABLE [Suspect]
     Active Substance: CYCLOPHOSPHAMIDE
     Indication: ANTI-NEUTROPHIL CYTOPLASMIC ANTIBODY POSITIVE VASCULITIS
  2. ONCOVIN [Suspect]
     Active Substance: VINCRISTINE SULFATE
     Indication: EXTRANODAL MARGINAL ZONE B-CELL LYMPHOMA (MALT TYPE) RECURRENT
     Dosage: PERFUSION: CHOP REGIMEN
     Route: 042
     Dates: start: 200011, end: 200104
  3. KARDEGIC [Concomitant]
     Active Substance: ASPIRIN LYSINE
     Indication: PRODUCT USED FOR UNKNOWN INDICATION
     Route: 065
  4. ADRIBLASTINE [Suspect]
     Active Substance: DOXORUBICIN
     Indication: EXTRANODAL MARGINAL ZONE B-CELL LYMPHOMA (MALT TYPE) RECURRENT
     Dosage: PERFUSION: CHOP REGIMEN
     Route: 042
     Dates: start: 200011, end: 200104
  5. INEXIUM [Concomitant]
     Active Substance: ESOMEPRAZOLE
     Indication: PRODUCT USED FOR UNKNOWN INDICATION
     Route: 065
  6. UROMITEXAN 5 G/50 ML, SOLUTION INJECTABLE POUR PERFUSION EN FLACON [Suspect]
     Active Substance: MESNA
     Indication: PRODUCT USED FOR UNKNOWN INDICATION
     Dosage: 5 CYCLES
     Route: 065
     Dates: start: 20160727, end: 20161027
  7. ENDOXAN 1000 MG, POUDRE POUR SOLUTION INJECTABLE [Suspect]
     Active Substance: CYCLOPHOSPHAMIDE
     Indication: EXTRANODAL MARGINAL ZONE B-CELL LYMPHOMA (MALT TYPE) RECURRENT
     Dosage: PERFUSION: CHOP REGIMEN: CYCLICAL
     Route: 042
     Dates: start: 200011, end: 200104
  8. SOLUPRED [Suspect]
     Active Substance: PREDNISOLONE
     Indication: EXTRANODAL MARGINAL ZONE B-CELL LYMPHOMA (MALT TYPE) RECURRENT
     Dosage: PERFUSION: CHOP REGIMEN: FROM DAY 1 TO 5
     Route: 042
     Dates: start: 200011, end: 200104
  9. KAYEXALATE [Concomitant]
     Active Substance: SODIUM POLYSTYRENE SULFONATE
     Indication: PRODUCT USED FOR UNKNOWN INDICATION
     Route: 065
  10. LEXOMIL [Concomitant]
     Active Substance: BROMAZEPAM
     Indication: PRODUCT USED FOR UNKNOWN INDICATION
     Route: 065
  11. CHLORAMINOPHENE [Suspect]
     Active Substance: CHLORAMBUCIL
     Indication: EXTRANODAL MARGINAL ZONE B-CELL LYMPHOMA (MALT TYPE)
     Dosage: PER OS: 12 CYCLES: 5 DAYS PER MONTH
     Route: 048
     Dates: start: 1994, end: 1995
  12. LEVOTHYROX [Concomitant]
     Active Substance: LEVOTHYROXINE
     Indication: PRODUCT USED FOR UNKNOWN INDICATION
     Route: 065
  13. CHLORAMINOPHENE [Suspect]
     Active Substance: CHLORAMBUCIL
     Indication: EXTRANODAL MARGINAL ZONE B-CELL LYMPHOMA (MALT TYPE) RECURRENT
     Dosage: PER OS: 6 CYCLES: 5 DAYS PER MONTH
     Route: 048
     Dates: start: 199601, end: 199706
  14. EUPRESSYL [Concomitant]
     Active Substance: URAPIDIL
     Indication: PRODUCT USED FOR UNKNOWN INDICATION
     Dosage: BID
     Route: 065
  15. FOLIC ACID. [Concomitant]
     Active Substance: FOLIC ACID
     Indication: PRODUCT USED FOR UNKNOWN INDICATION
     Route: 065
  16. AMLOR [Concomitant]
     Active Substance: AMLODIPINE BESYLATE
     Indication: PRODUCT USED FOR UNKNOWN INDICATION
     Route: 065
  17. BACTRIM [Concomitant]
     Active Substance: SULFAMETHOXAZOLE\TRIMETHOPRIM
     Indication: PRODUCT USED FOR UNKNOWN INDICATION
     Route: 065
  18. ENDOXAN 1000 MG, POUDRE POUR SOLUTION INJECTABLE [Suspect]
     Active Substance: CYCLOPHOSPHAMIDE
     Indication: RENAL VASCULITIS
     Dosage: PERFUSION: 5 CYCLES
     Route: 042
     Dates: start: 20160727, end: 20161027
  19. LASILIX [Concomitant]
     Active Substance: FUROSEMIDE
     Indication: PRODUCT USED FOR UNKNOWN INDICATION
     Route: 065

REACTIONS (8)
  - Hypertensive crisis [Unknown]
  - Pulmonary alveolar haemorrhage [Unknown]
  - Congestive cardiomyopathy [Recovered/Resolved with Sequelae]
  - Vasculitis [Unknown]
  - Red blood cell count decreased [Unknown]
  - Renal vasculitis [Unknown]
  - Anti-neutrophil cytoplasmic antibody positive vasculitis [Unknown]
  - Acute pulmonary oedema [Unknown]

NARRATIVE: CASE EVENT DATE: 201606
